FAERS Safety Report 23143126 (Version 1)
Quarter: 2023Q4

REPORT INFORMATION
  Report Type: Report from Study
  Country: FR (occurrence: FR)
  Receive Date: 20231103
  Receipt Date: 20231103
  Transmission Date: 20240110
  Serious: Yes (Other)
  Sender: FDA-Public Use
  Company Number: FR-002147023-NVSC2023FR232981

PATIENT
  Age: 76 Year
  Sex: Male

DRUGS (4)
  1. PLUVICTO [Suspect]
     Active Substance: LUTETIUM LU-177 VIPIVOTIDE TETRAXETAN
     Indication: Prostate cancer
     Dosage: 6820 MBQ, ONCE (1ST CYCLE)
     Route: 042
     Dates: start: 20230531, end: 20230531
  2. PLUVICTO [Suspect]
     Active Substance: LUTETIUM LU-177 VIPIVOTIDE TETRAXETAN
     Dosage: 7049 MBQ, ONCE (2ND CYCLE)
     Route: 042
     Dates: start: 20230712, end: 20230712
  3. PLUVICTO [Suspect]
     Active Substance: LUTETIUM LU-177 VIPIVOTIDE TETRAXETAN
     Dosage: 7260 MBQ, ONCE (3RD CYCLE)
     Route: 042
     Dates: start: 20230823, end: 20230823
  4. PLUVICTO [Suspect]
     Active Substance: LUTETIUM LU-177 VIPIVOTIDE TETRAXETAN
     Dosage: 6970 MBQ, ONCE (4TH CYCLE)
     Route: 042
     Dates: start: 20231004, end: 20231004

REACTIONS (4)
  - Xerophthalmia [Not Recovered/Not Resolved]
  - Eye pain [Not Recovered/Not Resolved]
  - Ocular discomfort [Not Recovered/Not Resolved]
  - Visual impairment [Not Recovered/Not Resolved]

NARRATIVE: CASE EVENT DATE: 20230101
